FAERS Safety Report 12752759 (Version 2)
Quarter: 2017Q1

REPORT INFORMATION
  Report Type: Report from Study
  Country: BE (occurrence: BE)
  Receive Date: 20160916
  Receipt Date: 20170213
  Transmission Date: 20170428
  Serious: Yes (Hospitalization, Other)
  Sender: FDA-Public Use
  Company Number: BE-ROCHE-ITM201504IM014559

PATIENT
  Age: 82 Year
  Sex: Female
  Weight: 59 kg

DRUGS (4)
  1. LIPANTHYL [Concomitant]
     Active Substance: FENOFIBRATE
     Indication: DYSLIPIDAEMIA
     Route: 065
     Dates: start: 19980206, end: 20151123
  2. PIRFENIDONE [Suspect]
     Active Substance: PIRFENIDONE
     Indication: IDIOPATHIC PULMONARY FIBROSIS
     Dosage: 3 CAPS 3 TIMES A DAY (MORNING, MIDDAY, EVENING)
     Route: 048
     Dates: end: 20150401
  3. NEXIAM [Suspect]
     Active Substance: ESOMEPRAZOLE
     Indication: GASTROOESOPHAGEAL REFLUX DISEASE
     Route: 065
     Dates: start: 20150225
  4. PIRFENIDONE [Suspect]
     Active Substance: PIRFENIDONE
     Dosage: 2 CAPS 3 TIMES A DAY (MORNING, MIDDAY, EVENING)
     Route: 048
     Dates: start: 20150402, end: 20151123

REACTIONS (4)
  - General physical health deterioration [Recovered/Resolved]
  - Extrasystoles [Unknown]
  - Fatigue [Not Recovered/Not Resolved]
  - Vertigo [Not Recovered/Not Resolved]

NARRATIVE: CASE EVENT DATE: 20150401
